FAERS Safety Report 15683133 (Version 1)
Quarter: 2018Q4

REPORT INFORMATION
  Report Type: Spontaneous
  Country: FR (occurrence: FR)
  Receive Date: 20181204
  Receipt Date: 20181204
  Transmission Date: 20190205
  Serious: Yes (Death, Other)
  Sender: FDA-Public Use
  Company Number: FR-AUROBINDO-AUR-APL-2018-057906

PATIENT
  Age: 68 Year
  Sex: Male
  Weight: 65 kg

DRUGS (2)
  1. TRAMADOL. [Suspect]
     Active Substance: TRAMADOL
     Indication: BACK PAIN
     Route: 048
     Dates: start: 20181010, end: 20181010
  2. PROFENID [Suspect]
     Active Substance: KETOPROFEN
     Indication: BACK PAIN
     Dosage: 100 MILLIGRAM, ONCE A DAY
     Route: 048
     Dates: start: 20181010, end: 20181010

REACTIONS (1)
  - Type I hypersensitivity [Fatal]

NARRATIVE: CASE EVENT DATE: 20181010
